FAERS Safety Report 25806072 (Version 1)
Quarter: 2025Q3

REPORT INFORMATION
  Report Type: Report from Study
  Country: US (occurrence: US)
  Receive Date: 20250916
  Receipt Date: 20250916
  Transmission Date: 20251021
  Serious: Yes (Other)
  Sender: SUNOVION
  Company Number: US-SMPA-2025SPA011727

PATIENT
  Age: 59 Year
  Sex: Male

DRUGS (22)
  1. ORGOVYX [Suspect]
     Active Substance: RELUGOLIX
     Indication: Prostate cancer
     Route: 048
  2. ABIRATERONE [Concomitant]
     Active Substance: ABIRATERONE
     Dosage: 1000 MG, QD
  3. BISACODYL [Concomitant]
     Active Substance: BISACODYL
  4. CLONIDINE [Concomitant]
     Active Substance: CLONIDINE
  5. CLOPIDOGREL [Concomitant]
     Active Substance: CLOPIDOGREL BISULFATE
  6. DIPHENHYDRAMINE [Concomitant]
     Active Substance: DIPHENHYDRAMINE
  7. DOCUSATE [Concomitant]
     Active Substance: DOCUSATE
  8. FLOMAX [Concomitant]
     Active Substance: TAMSULOSIN HYDROCHLORIDE
  9. Gas-x max strength [Concomitant]
  10. LIPITOR [Concomitant]
     Active Substance: ATORVASTATIN CALCIUM
  11. LUPRON [Concomitant]
     Active Substance: LEUPROLIDE ACETATE
  12. MELATONIN [Concomitant]
     Active Substance: MELATONIN
  13. MIRALAX [Concomitant]
     Active Substance: POLYETHYLENE GLYCOL 3350
  14. NARCAN [Concomitant]
     Active Substance: NALOXONE HYDROCHLORIDE
  15. NORCO [Concomitant]
     Active Substance: ACETAMINOPHEN\HYDROCODONE BITARTRATE
  16. ONDANSETRON [Concomitant]
     Active Substance: ONDANSETRON
  17. OXYCONTIN [Concomitant]
     Active Substance: OXYCODONE HYDROCHLORIDE
  18. PREDNISONE [Concomitant]
     Active Substance: PREDNISONE
     Dosage: 5 MG, BID
  19. PROCHLORPERAZINE [Concomitant]
     Active Substance: PROCHLORPERAZINE
  20. NAPROXEN [Concomitant]
     Active Substance: NAPROXEN
  21. SENNA [Concomitant]
     Active Substance: SENNOSIDES
  22. VENLAFAXINE [Concomitant]
     Active Substance: VENLAFAXINE HYDROCHLORIDE

REACTIONS (9)
  - Neoplasm progression [Unknown]
  - Gait disturbance [Unknown]
  - Weight increased [Unknown]
  - Myalgia [Unknown]
  - Arthralgia [Unknown]
  - Hot flush [Recovering/Resolving]
  - Hyperhidrosis [Unknown]
  - Product dose omission issue [Recovered/Resolved]
  - Incorrect dose administered [Recovered/Resolved]
